FAERS Safety Report 7255262-2 (Version None)
Quarter: 2011Q1

REPORT INFORMATION
  Report Type: 
  Country: None (occurrence: None)
  Receive Date: 20110129
  Receipt Date: 20100323
  Transmission Date: 20110831
  Serious: No
  Sender: FDA-Public Use
  Company Number: US-ABBOTT-10P-163-0629328-00

PATIENT
  Weight: 90.8 kg

DRUGS (1)
  1. HUMIRA [Suspect]
     Indication: PSORIASIS

REACTIONS (7)
  - HERPES ZOSTER [None]
  - URTICARIA [None]
  - NASAL OEDEMA [None]
  - EXTRAVASATION [None]
  - AURICULAR SWELLING [None]
  - NASAL DISCOMFORT [None]
  - LOCALISED OEDEMA [None]
